FAERS Safety Report 5485719-6 (Version None)
Quarter: 2007Q4

REPORT INFORMATION
  Report Type: 
  Country: None (occurrence: None)
  Receive Date: 20071015
  Receipt Date: 20071004
  Transmission Date: 20080405
  Serious: Yes (Other)
  Sender: FDA-Public Use
  Company Number: US-AMGEN-QUU246644

PATIENT
  Sex: Female

DRUGS (2)
  1. ENBREL [Suspect]
     Indication: RHEUMATOID ARTHRITIS
     Route: 058
     Dates: start: 20040101
  2. BONIVA [Concomitant]

REACTIONS (4)
  - BONE PAIN [None]
  - BRONCHIECTASIS [None]
  - EMPHYSEMA [None]
  - HAND DEFORMITY [None]
